FAERS Safety Report 5138698-5 (Version None)
Quarter: 2006Q4

REPORT INFORMATION
  Report Type: 
  Country: None (occurrence: None)
  Receive Date: 20061024
  Receipt Date: 20061012
  Transmission Date: 20070319
  Serious: Yes (Other)
  Sender: FDA-Public Use
  Company Number: HQWYE046413OCT06

PATIENT
  Age: 53 Year
  Sex: Female

DRUGS (1)
  1. PREMARIN [Suspect]
     Dosage: ORAL
     Route: 048
     Dates: start: 20000101, end: 20060101

REACTIONS (4)
  - IMPAIRED DRIVING ABILITY [None]
  - PAIN [None]
  - PAPILLOEDEMA [None]
  - VISUAL ACUITY REDUCED [None]
